FAERS Safety Report 22252300 (Version 1)
Quarter: 2023Q2

REPORT INFORMATION
  Report Type: Other
  Country: US (occurrence: US)
  Receive Date: 20230426
  Receipt Date: 20230426
  Transmission Date: 20230721
  Serious: Yes (Death)
  Sender: FDA-Public Use
  Company Number: US-Bion-011487

PATIENT
  Age: 35 Year
  Sex: Male

DRUGS (9)
  1. DIPHENHYDRAMINE [Suspect]
     Active Substance: DIPHENHYDRAMINE
     Indication: Product used for unknown indication
  2. MORPHINE [Concomitant]
     Active Substance: MORPHINE
     Indication: Product used for unknown indication
  3. NALOXONE [Concomitant]
     Active Substance: NALOXONE
     Indication: Product used for unknown indication
  4. COCAINE [Concomitant]
     Active Substance: COCAINE
     Indication: Product used for unknown indication
  5. COCAETHYLENE [Concomitant]
     Active Substance: COCAETHYLENE
     Indication: Product used for unknown indication
  6. PHENACETIN [Concomitant]
     Active Substance: PHENACETIN
     Indication: Product used for unknown indication
  7. LEVAMISOLE [Concomitant]
     Active Substance: LEVAMISOLE
     Indication: Product used for unknown indication
  8. LIDOCAINE [Concomitant]
     Active Substance: LIDOCAINE
     Indication: Product used for unknown indication
  9. GABAPENTIN [Concomitant]
     Active Substance: GABAPENTIN
     Indication: Product used for unknown indication

REACTIONS (1)
  - Drug abuse [Fatal]

NARRATIVE: CASE EVENT DATE: 20181201
